FAERS Safety Report 14731066 (Version 2)
Quarter: 2018Q4

REPORT INFORMATION
  Report Type: Spontaneous
  Country: US (occurrence: US)
  Receive Date: 20180406
  Receipt Date: 20181227
  Transmission Date: 20190204
  Serious: No
  Sender: FDA-Public Use
  Company Number: US-ACTELION-A-NJ2018-170059

PATIENT
  Age: 53 Year
  Sex: Male
  Weight: 89.8 kg

DRUGS (1)
  1. TRACLEER [Suspect]
     Active Substance: BOSENTAN
     Indication: RAYNAUD^S PHENOMENON
     Dosage: 125 MG, BID
     Route: 048
     Dates: start: 20180111

REACTIONS (2)
  - Off label use [Unknown]
  - No adverse event [Unknown]
